FAERS Safety Report 5660709-9 (Version None)
Quarter: 2008Q1

REPORT INFORMATION
  Report Type: 
  Country: None (occurrence: None)
  Receive Date: 20080311
  Receipt Date: 20080227
  Transmission Date: 20080703
  Serious: Yes (Hospitalization)
  Sender: FDA-Public Use
  Company Number: HU-ELI_LILLY_AND_COMPANY-HU200802006457

PATIENT
  Age: 55 Year
  Sex: Female

DRUGS (11)
  1. HUMULIN R [Suspect]
     Dosage: 14 UNITS, EACH MORNING
     Route: 058
     Dates: start: 20080211
  2. HUMULIN R [Suspect]
     Dosage: 10 U, AT NOON
     Route: 058
     Dates: start: 20080211
  3. HUMULIN R [Suspect]
     Dosage: 12 U, EACH EVENING
     Route: 058
     Dates: start: 20080211
  4. HUMULIN N [Suspect]
     Dosage: 20 U, EACH EVENING AT 22:00
     Route: 058
     Dates: start: 20080211
  5. MERCKFORMIN [Concomitant]
     Dosage: 850 MG, 3/D
     Route: 048
  6. ASPIRIN [Concomitant]
     Dosage: UNK, DAILY (1/D)
     Route: 048
  7. LOKREN [Concomitant]
     Indication: HYPERTENSION
     Dosage: 20 MG, DAILY (1/D)
     Route: 048
  8. TRENTAL [Concomitant]
     Dosage: UNK UNK, 3/D
     Route: 048
  9. PLAVIX [Concomitant]
     Dosage: UNK, UNKNOWN
     Route: 065
     Dates: end: 20080223
  10. LOVASTATIN [Concomitant]
     Dosage: 40 MG, DAILY (1/D)
     Route: 048
  11. POTASSIUM CHLORIDE [Concomitant]
     Dosage: UNK, DAILY (1/D)
     Route: 048

REACTIONS (5)
  - ARTHRALGIA [None]
  - HOSPITALISATION [None]
  - JOINT SWELLING [None]
  - METATARSALGIA [None]
  - URTICARIA [None]
